FAERS Safety Report 14069437 (Version 1)
Quarter: 2017Q4

REPORT INFORMATION
  Report Type: Spontaneous
  Country: US (occurrence: US)
  Receive Date: 20171010
  Receipt Date: 20171010
  Transmission Date: 20180321
  Serious: Yes (Other)
  Sender: FDA-Public Use
  Company Number: US-GLAXOSMITHKLINE-US2017153416

PATIENT
  Sex: Male

DRUGS (6)
  1. DAPSONE. [Concomitant]
     Active Substance: DAPSONE
  2. VALTREX [Concomitant]
     Active Substance: VALACYCLOVIR HYDROCHLORIDE
  3. LAMOTRIGINE. [Suspect]
     Active Substance: LAMOTRIGINE
     Indication: BIPOLAR DISORDER
     Dosage: 400 MG, 1D
     Dates: start: 2002
  4. SEROQUEL [Concomitant]
     Active Substance: QUETIAPINE FUMARATE
  5. LITHIUM. [Concomitant]
     Active Substance: LITHIUM
  6. AMLODIPINE [Concomitant]
     Active Substance: AMLODIPINE BESYLATE

REACTIONS (2)
  - Plasma cell myeloma [Unknown]
  - Anaemia [Unknown]

NARRATIVE: CASE EVENT DATE: 2015
